FAERS Safety Report 17725254 (Version 23)
Quarter: 2022Q1

REPORT INFORMATION
  Report Type: Report from Study
  Country: CA (occurrence: CA)
  Receive Date: 20200429
  Receipt Date: 20220105
  Transmission Date: 20220424
  Serious: Yes (Hospitalization, Other)
  Sender: FDA-Public Use
  Company Number: PHHY2017CA063803

PATIENT
  Sex: Male

DRUGS (10)
  1. SANDOSTATIN LAR DEPOT [Suspect]
     Active Substance: OCTREOTIDE ACETATE
     Indication: Carcinoid tumour
     Dosage: 30 MG, Q4W
     Route: 030
     Dates: start: 20170428
  2. SANDOSTATIN LAR DEPOT [Suspect]
     Active Substance: OCTREOTIDE ACETATE
     Dosage: 60 MG
     Route: 065
     Dates: start: 202107
  3. SANDOSTATIN LAR DEPOT [Suspect]
     Active Substance: OCTREOTIDE ACETATE
     Dosage: 60 MG, Q4W
     Route: 065
     Dates: start: 20210812
  4. SANDOSTATIN [Suspect]
     Active Substance: OCTREOTIDE ACETATE
     Indication: Carcinoid tumour
     Dosage: 100 UG, TID (100 MCG, TID)
     Route: 058
     Dates: start: 20170421
  5. SANDOSTATIN [Suspect]
     Active Substance: OCTREOTIDE ACETATE
  6. SANDOSTATIN [Suspect]
     Active Substance: OCTREOTIDE ACETATE
  7. VALSARTAN [Suspect]
     Active Substance: VALSARTAN
     Indication: Hypertension
     Dosage: 80 MG, QD
     Route: 048
     Dates: end: 20170923
  8. VALSARTAN [Suspect]
     Active Substance: VALSARTAN
     Dosage: 120 MG, QD
     Route: 048
     Dates: start: 20170924
  9. VALSARTAN [Suspect]
     Active Substance: VALSARTAN
     Dosage: 1 DF, QD (160 MG)
     Route: 048
  10. AREDIA [Suspect]
     Active Substance: PAMIDRONATE DISODIUM
     Indication: Product used for unknown indication
     Dosage: 90 MG, UNK
     Route: 042
     Dates: start: 20171123, end: 20171123

REACTIONS (28)
  - Parathyroid tumour benign [Unknown]
  - Blood pressure increased [Unknown]
  - Nephrolithiasis [Unknown]
  - Renal pain [Unknown]
  - Pancreatic neoplasm [Unknown]
  - Eructation [Unknown]
  - Blood testosterone increased [Unknown]
  - Skin induration [Recovered/Resolved]
  - Ingrown hair [Recovered/Resolved]
  - Hyperaesthesia [Recovered/Resolved]
  - Purulent discharge [Recovered/Resolved]
  - Skin haemorrhage [Recovered/Resolved]
  - Erythema [Not Recovered/Not Resolved]
  - Hypoaesthesia [Unknown]
  - Arthralgia [Unknown]
  - Pyrexia [Unknown]
  - Chills [Unknown]
  - Myalgia [Unknown]
  - Blood testosterone decreased [Unknown]
  - Body temperature decreased [Unknown]
  - Haemorrhoids [Recovering/Resolving]
  - Weight decreased [Unknown]
  - Hypocalcaemia [Unknown]
  - Diarrhoea [Unknown]
  - Dyspepsia [Unknown]
  - Flatulence [Unknown]
  - Injection site pain [Unknown]
  - Nervousness [Unknown]

NARRATIVE: CASE EVENT DATE: 20170101
